FAERS Safety Report 11826236 (Version 1)
Quarter: 2015Q4

REPORT INFORMATION
  Report Type: Spontaneous
  Country: FR (occurrence: FR)
  Receive Date: 20151211
  Receipt Date: 20151211
  Transmission Date: 20160305
  Serious: Yes (Other)
  Sender: FDA-Public Use
  Company Number: PHHY2015FR160947

PATIENT
  Age: 58 Year
  Sex: Male

DRUGS (2)
  1. DABRAFENIB [Suspect]
     Active Substance: DABRAFENIB
     Indication: BRAF GENE MUTATION
     Dosage: 150 MG, BID
     Route: 065
  2. DABRAFENIB [Suspect]
     Active Substance: DABRAFENIB
     Indication: LANGERHANS^ CELL HISTIOCYTOSIS
     Dosage: 100 MG, BID
     Route: 065

REACTIONS (6)
  - Diarrhoea [Recovered/Resolved]
  - Drug resistance [Unknown]
  - Hyperkeratosis [Unknown]
  - Therapeutic response decreased [Unknown]
  - BRAF gene mutation [Unknown]
  - Langerhans^ cell histiocytosis [Unknown]
